FAERS Safety Report 9697540 (Version 1)
Quarter: 2013Q4

REPORT INFORMATION
  Report Type: Report from Study
  Country: US (occurrence: US)
  Receive Date: 20131120
  Receipt Date: 20131120
  Transmission Date: 20140711
  Serious: Yes (Hospitalization)
  Sender: FDA-Public Use
  Company Number: US-ROCHE-1304911

PATIENT
  Sex: Male

DRUGS (14)
  1. XOLAIR [Suspect]
     Indication: ASTHMA
     Dosage: IN 150ML SOLUTION ON 05-SEP-2013
     Route: 058
     Dates: start: 20130905
  2. ADVAIR DISKUS [Concomitant]
     Dosage: 1 PUFF INHALED IN AM AND PM FOR 30 DAYS.?500/50 MCG
     Route: 065
  3. ASPIRIN [Concomitant]
     Route: 048
  4. ATROVENT HFA [Concomitant]
     Route: 065
  5. DILTIAZEM HCL [Concomitant]
     Dosage: EXT RELEASE, 24 HOUR
     Route: 048
  6. FERROUS SULFATE [Concomitant]
     Route: 048
  7. QVAR [Concomitant]
     Route: 065
  8. SINGULAIR [Concomitant]
     Route: 048
  9. TAMSULOSIN [Concomitant]
     Route: 048
  10. TERAZOSIN [Concomitant]
     Route: 048
  11. ZOFRAN [Concomitant]
     Route: 048
  12. ZYRTEC [Concomitant]
     Route: 048
  13. PREDNISONE [Concomitant]
     Dosage: TO BE TAPERED BY 5MG Q2DAYS TO A STOP
     Route: 048
  14. AUGMENTIN [Concomitant]
     Dosage: FOR 7 DAYS
     Route: 065

REACTIONS (8)
  - Cardiac pacemaker insertion [Unknown]
  - Asthma [Unknown]
  - Dyspnoea [Unknown]
  - Chest discomfort [Unknown]
  - Sputum purulent [Unknown]
  - Headache [Unknown]
  - Dyspnoea exertional [Unknown]
  - Wheezing [Unknown]
